FAERS Safety Report 4867033-2 (Version None)
Quarter: 2005Q4

REPORT INFORMATION
  Report Type: 
  Country: None (occurrence: None)
  Receive Date: 20051222
  Receipt Date: 20051209
  Transmission Date: 20060501
  Serious: Yes (Disabling, Other)
  Sender: FDA-Public Use
  Company Number: PHHO2004JP14983

PATIENT
  Age: 76 Year
  Sex: Male
  Weight: 65.0005 kg

DRUGS (6)
  1. VISUDYNE [Suspect]
     Indication: MACULAR DEGENERATION
     Dosage: 6 MG/ML ONCE IV
     Route: 042
     Dates: start: 20040629, end: 20040629
  2. BLOPRESS [Concomitant]
  3. NORVASC [Concomitant]
  4. CARDENALIN [Concomitant]
  5. ZANTAC [Concomitant]
  6. ADONA [Concomitant]

REACTIONS (7)
  - BLOOD PRESSURE INCREASED [None]
  - CHEST DISCOMFORT [None]
  - DETACHMENT OF RETINAL PIGMENT EPITHELIUM [None]
  - EYE HAEMORRHAGE [None]
  - PROCEDURAL COMPLICATION [None]
  - RETINAL TEAR [None]
  - SUBRETINAL FIBROSIS [None]
